FAERS Safety Report 4713678-X (Version None)
Quarter: 2005Q3

REPORT INFORMATION
  Report Type: 
  Country: None (occurrence: None)
  Receive Date: 20050713
  Receipt Date: 20050628
  Transmission Date: 20060218
  Serious: Yes (Hospitalization)
  Sender: FDA-Public Use
  Company Number: US_0408104879

PATIENT
  Age: 41 Year
  Sex: Female
  Weight: 117.9352 kg

DRUGS (34)
  1. ZYPREXA [Suspect]
     Indication: SCHIZOPHRENIA
     Dosage: 15 MG AT BEDTIME
     Dates: start: 20011212, end: 20020309
  2. ZESTRIL [Concomitant]
  3. CELEXA [Concomitant]
  4. 'THIMOX' [Concomitant]
  5. CELEBREX [Concomitant]
  6. SINGULAIR (MONTELEUKAST) [Concomitant]
  7. NEXIUM [Concomitant]
  8. SENOKOT (SENNA ALEXANDRINA) [Concomitant]
  9. TRAZODONE HCL [Concomitant]
  10. ZYRTEC [Concomitant]
  11. HYDROCHLOROTHIAZIDE [Concomitant]
  12. ATROVENT [Concomitant]
  13. POTASSIUM CHLORIDE [Concomitant]
  14. ASCORBIC ACID [Concomitant]
  15. VITAMIN E (HERBAL OIL NOS) [Concomitant]
  16. GEODON [Concomitant]
  17. ALBUTEROL [Concomitant]
  18. ADVAIR DISKUS 100/50 [Concomitant]
  19. FLONASE [Concomitant]
  20. IBUPROFEN [Concomitant]
  21. HYDROCORTISONE, TOPICAL [Concomitant]
  22. CYCLOBENZAPRINE HCL [Concomitant]
  23. DESONIDE [Concomitant]
  24. CLOTRIMAZOLE [Concomitant]
  25. MULTIVIATMIN [Concomitant]
  26. BENZONATATE [Concomitant]
  27. ACULAR [Concomitant]
  28. CITRUCEL (METHYLCELLULOSE) [Concomitant]
  29. DOCUSATE [Concomitant]
  30. LOTRISONE [Concomitant]
  31. HYDRALAZINE [Concomitant]
  32. PROTONIX [Concomitant]
  33. MAALOX [Concomitant]
  34. ATIVAN [Concomitant]

REACTIONS (21)
  - ASTHMA [None]
  - BLOOD GLUCOSE INCREASED [None]
  - BLOOD PRESSURE DIASTOLIC DECREASED [None]
  - BLOOD PRESSURE SYSTOLIC INCREASED [None]
  - BRONCHITIS ACUTE [None]
  - CHRONIC OBSTRUCTIVE PULMONARY DISEASE [None]
  - DIABETES MELLITUS NON-INSULIN-DEPENDENT [None]
  - EAR PAIN [None]
  - FATIGUE [None]
  - HEADACHE [None]
  - HYPERPHAGIA [None]
  - HYPOAESTHESIA [None]
  - IMPAIRED HEALING [None]
  - INCONTINENCE [None]
  - LIPASE INCREASED [None]
  - PARAESTHESIA [None]
  - PHARYNGITIS STREPTOCOCCAL [None]
  - PSYCHOTIC DISORDER [None]
  - TREATMENT NONCOMPLIANCE [None]
  - WEIGHT DECREASED [None]
  - WEIGHT INCREASED [None]
